FAERS Safety Report 4928251-8 (Version None)
Quarter: 2006Q1

REPORT INFORMATION
  Report Type: 
  Country: None (occurrence: None)
  Receive Date: 20060223
  Receipt Date: 20060217
  Transmission Date: 20060701
  Serious: Yes (Other)
  Sender: FDA-Public Use
  Company Number: S05-USA-05183-01

PATIENT
  Age: 28 Year
  Sex: Female

DRUGS (15)
  1. LEXAPRO [Suspect]
     Indication: MAJOR DEPRESSION
     Dosage: 20 MG QHS PO
     Route: 048
  2. LEXAPRO [Suspect]
     Indication: MAJOR DEPRESSION
     Dosage: 5 MG QHS PO
     Route: 048
  3. LEXAPRO [Suspect]
     Indication: MAJOR DEPRESSION
     Dosage: 10 MG QHS PO
     Route: 048
  4. LEXAPRO [Suspect]
     Indication: MAJOR DEPRESSION
     Dosage: 15 MG QHS PO
     Route: 048
  5. AMBIEN [Concomitant]
  6. SEROQUEL [Concomitant]
  7. ZOLOFT [Concomitant]
  8. CONCERTA [Concomitant]
  9. ALLEGRA [Concomitant]
  10. XANAX [Concomitant]
  11. PULMICORT [Concomitant]
  12. HYDROCODONE [Concomitant]
  13. ALBUTEROL [Concomitant]
  14. ATROVENT [Concomitant]
  15. FLORADIL (FORMOTEROL) [Concomitant]

REACTIONS (8)
  - ABNORMAL DREAMS [None]
  - CONDITION AGGRAVATED [None]
  - DYSARTHRIA [None]
  - DYSKINESIA [None]
  - FEELING ABNORMAL [None]
  - HYPERHIDROSIS [None]
  - INSOMNIA [None]
  - PARAESTHESIA [None]
